FAERS Safety Report 11873298 (Version 1)
Quarter: 2015Q4

REPORT INFORMATION
  Report Type: Report from Study
  Country: US (occurrence: US)
  Receive Date: 20151228
  Receipt Date: 20151228
  Transmission Date: 20160305
  Serious: Yes (Other)
  Sender: FDA-Public Use
  Company Number: US-ABBVIE-15P-163-1524983-00

PATIENT
  Sex: Female

DRUGS (3)
  1. LUPRON DEPOT [Suspect]
     Active Substance: LEUPROLIDE ACETATE
     Route: 050
     Dates: start: 2007
  2. LUPRON DEPOT [Suspect]
     Active Substance: LEUPROLIDE ACETATE
     Indication: ENDOMETRIOSIS
     Route: 050
     Dates: start: 20151201
  3. SINGULAIR [Concomitant]
     Active Substance: MONTELUKAST SODIUM
     Indication: HYPERSENSITIVITY
     Dosage: DAILY
     Route: 048
     Dates: start: 2013

REACTIONS (11)
  - Hot flush [Recovered/Resolved]
  - Abdominal pain [Recovering/Resolving]
  - Migraine [Not Recovered/Not Resolved]
  - Menorrhagia [Recovered/Resolved]
  - Dyspareunia [Recovering/Resolving]
  - Osteoma [Not Recovered/Not Resolved]
  - Pelvic pain [Recovered/Resolved]
  - Abdominal discomfort [Recovering/Resolving]
  - Endometrial ablation [Unknown]
  - Vitamin D decreased [Not Recovered/Not Resolved]
  - Pelvic pain [Not Recovered/Not Resolved]

NARRATIVE: CASE EVENT DATE: 2007
